FAERS Safety Report 8590963-5 (Version None)
Quarter: 2012Q3

REPORT INFORMATION
  Report Type: 
  Country: None (occurrence: None)
  Receive Date: 20120813
  Receipt Date: 20120802
  Transmission Date: 20120928
  Serious: Yes (Hospitalization)
  Sender: FDA-Public Use
  Company Number: BE-BAXTER-2012BAX013609

PATIENT
  Sex: Female
  Weight: 74.1 kg

DRUGS (7)
  1. CYCLOPHOSPHAMIDE [Suspect]
     Route: 065
     Dates: start: 20120514, end: 20120514
  2. FLUOROURACIL [Suspect]
     Route: 065
     Dates: start: 20120514, end: 20120514
  3. EPIRUBICIN HYDROCHLORIDE [Suspect]
     Route: 065
     Dates: start: 20120514, end: 20120514
  4. FLUOROURACIL [Suspect]
     Route: 065
     Dates: start: 20120604, end: 20120604
  5. EPIRUBICIN HYDROCHLORIDE [Suspect]
     Route: 065
     Dates: start: 20120604, end: 20120604
  6. EMEND [Concomitant]
     Route: 065
     Dates: start: 20120514, end: 20120528
  7. CYCLOPHOSPHAMIDE [Suspect]
     Route: 065
     Dates: start: 20120604, end: 20120604

REACTIONS (1)
  - PANCREATITIS [None]
